FAERS Safety Report 6076350-2 (Version None)
Quarter: 2009Q1

REPORT INFORMATION
  Report Type: 
  Country: None (occurrence: None)
  Receive Date: 20090209
  Receipt Date: 20090128
  Transmission Date: 20090719
  Serious: Yes (Other)
  Sender: FDA-Public Use
  Company Number: 200901010

PATIENT
  Age: 67 Year
  Sex: Male
  Weight: 63.5036 kg

DRUGS (9)
  1. TESTIM [Suspect]
     Indication: BLOOD TESTOSTERONE DECREASED
     Dosage: 50 MG, DAILY, TRANSDERMAL
     Route: 062
     Dates: start: 20090101, end: 20090101
  2. BONIVA [Concomitant]
  3. SYNTHROID [Concomitant]
  4. CALCIUM (CALCIUM) [Concomitant]
  5. MULTIVITAMIN [Concomitant]
  6. CHROMIUM (CHROMIUM) [Concomitant]
  7. SELENIUM (SELENIUM) [Concomitant]
  8. ZINC (ZINC) [Concomitant]
  9. ULTRAM [Concomitant]

REACTIONS (4)
  - DRUG ADMINISTERED AT INAPPROPRIATE SITE [None]
  - DYSPNOEA [None]
  - FLUSHING [None]
  - HEADACHE [None]
